FAERS Safety Report 8331116-5 (Version None)
Quarter: 2012Q2

REPORT INFORMATION
  Report Type: 
  Country: None (occurrence: None)
  Receive Date: 20120502
  Receipt Date: 20120412
  Transmission Date: 20120825
  Serious: No
  Sender: FDA-Public Use
  Company Number: US-AMGEN-USASP2012023164

PATIENT
  Age: 47 Year
  Sex: Female

DRUGS (1)
  1. ENBREL [Suspect]
     Indication: PSORIATIC ARTHROPATHY
     Dosage: 50 MG, QWK
     Dates: start: 20110501

REACTIONS (6)
  - SKIN HAEMORRHAGE [None]
  - PRURITUS [None]
  - SKIN FISSURES [None]
  - INJECTION SITE PAIN [None]
  - DRY SKIN [None]
  - OEDEMA PERIPHERAL [None]
